FAERS Safety Report 23097962 (Version 1)
Quarter: 2023Q4

REPORT INFORMATION
  Report Type: Spontaneous
  Country: RO (occurrence: None)
  Receive Date: 20231023
  Receipt Date: 20231023
  Transmission Date: 20240110
  Serious: Yes (Life-Threatening, Other)
  Sender: FDA-Public Use
  Company Number: 2023A239529

PATIENT
  Age: 89 Year
  Sex: Female

DRUGS (1)
  1. DAPAGLIFLOZIN [Suspect]
     Active Substance: DAPAGLIFLOZIN
     Indication: Cardiac failure
     Dosage: 10.0MG ONCE/SINGLE ADMINISTRATION
     Route: 048

REACTIONS (2)
  - Eyelid oedema [Recovered/Resolved]
  - Lip oedema [Recovered/Resolved]
